FAERS Safety Report 24589791 (Version 3)
Quarter: 2024Q4

REPORT INFORMATION
  Report Type: Spontaneous
  Country: SK (occurrence: SK)
  Receive Date: 20241107
  Receipt Date: 20241118
  Transmission Date: 20250115
  Serious: Yes (Death, Hospitalization, Other)
  Sender: SANDOZ
  Company Number: SK-LSSRM-2020-SK-1799711

PATIENT
  Age: 41 Year
  Sex: Male

DRUGS (7)
  1. AMIKACIN [Concomitant]
     Active Substance: AMIKACIN
     Indication: Haemophilus infection
     Dosage: UNK
     Route: 065
  2. AMIKACIN [Concomitant]
     Active Substance: AMIKACIN
     Indication: Candida infection
  3. MEROPENEM [Concomitant]
     Active Substance: MEROPENEM
     Indication: Haemophilus infection
     Dosage: UNK
     Route: 065
  4. MEROPENEM [Concomitant]
     Active Substance: MEROPENEM
     Indication: Candida infection
  5. CYCLOSPORINE [Interacting]
     Active Substance: CYCLOSPORINE
     Indication: Chronic graft versus host disease
     Dosage: UNK
     Route: 065
     Dates: start: 2015
  6. MYCOPHENOLATE MOFETIL [Interacting]
     Active Substance: MYCOPHENOLATE MOFETIL
     Indication: Chronic graft versus host disease
     Dosage: UNK
     Route: 065
     Dates: start: 2015
  7. METHYLPREDNISOLONE [Interacting]
     Active Substance: METHYLPREDNISOLONE
     Indication: Chronic graft versus host disease
     Dosage: UNK
     Route: 065
     Dates: start: 2015

REACTIONS (5)
  - Respiratory tract infection [Fatal]
  - Bronchopulmonary aspergillosis [Fatal]
  - Pulmonary fibrosis [Fatal]
  - Interstitial lung disease [Unknown]
  - Drug interaction [Unknown]

NARRATIVE: CASE EVENT DATE: 20150101
